FAERS Safety Report 8892470 (Version 2)
Quarter: 2013Q1

REPORT INFORMATION
  Report Type: Spontaneous
  Country: GB (occurrence: GB)
  Receive Date: 20121107
  Receipt Date: 20130116
  Transmission Date: 20140127
  Serious: Yes (Other)
  Sender: FDA-Public Use
  Company Number: GB-JNJFOC-20121102281

PATIENT
  Sex: Male
  Weight: 115 kg

DRUGS (5)
  1. ETRAVIRINE [Suspect]
     Indication: HIV INFECTION
     Route: 048
     Dates: start: 20090709, end: 20110906
  2. TRUVADA [Concomitant]
     Indication: HIV INFECTION
     Dosage: 1 TABLET
     Route: 048
     Dates: start: 20090709
  3. CETRIZINE [Concomitant]
     Indication: SEASONAL ALLERGY
     Route: 048
     Dates: start: 20110531
  4. FORCEVAL [Concomitant]
     Indication: HIV INFECTION
     Dosage: 1 CAPSULE
     Route: 048
     Dates: start: 20081106
  5. FENOFIBRATE [Concomitant]
     Indication: HYPERLIPIDAEMIA
     Route: 048
     Dates: start: 20101214, end: 20110823

REACTIONS (2)
  - Neuropathy peripheral [Recovering/Resolving]
  - Abscess [Unknown]
